FAERS Safety Report 7673249-2 (Version None)
Quarter: 2011Q3

REPORT INFORMATION
  Report Type: 
  Country: None (occurrence: None)
  Receive Date: 20110810
  Receipt Date: 20110805
  Transmission Date: 20111222
  Serious: Yes (Other)
  Sender: FDA-Public Use
  Company Number: US-PFIZER INC-2011179893

PATIENT
  Sex: Male

DRUGS (2)
  1. METOPROLOL [Concomitant]
     Dosage: UNK
  2. LIPITOR [Suspect]
     Dosage: UNK
     Route: 048
     Dates: start: 20040101

REACTIONS (1)
  - AMNESIA [None]
